FAERS Safety Report 8911394 (Version 2)
Quarter: 2012Q4

REPORT INFORMATION
  Report Type: 
  Country: DE (occurrence: DE)
  Receive Date: 20121116
  Receipt Date: 20121130
  Transmission Date: 20130627
  Serious: Yes (Other)
  Sender: FDA-Public Use
  Company Number: DE-SANOFI-AVENTIS-2012SA083937

PATIENT
  Age: 73 Year
  Sex: Female
  Weight: 60 kg

DRUGS (4)
  1. ARAVA [Suspect]
     Indication: RHEUMATISM
     Route: 048
     Dates: end: 201211
  2. SIMVASTATIN [Concomitant]
  3. DIOVAN ^NOVARTIS^ [Concomitant]
     Indication: HYPERTENSION
     Route: 048
  4. IBUPROFEN [Concomitant]
     Indication: RHEUMATISM
     Route: 048

REACTIONS (4)
  - Presyncope [Not Recovered/Not Resolved]
  - Amaurosis [Recovered/Resolved]
  - Hypertensive crisis [Unknown]
  - Amaurosis [Unknown]
